FAERS Safety Report 24050959 (Version 1)
Quarter: 2024Q3

REPORT INFORMATION
  Report Type: Spontaneous
  Country: CN (occurrence: CN)
  Receive Date: 20240704
  Receipt Date: 20240704
  Transmission Date: 20241016
  Serious: Yes (Other)
  Sender: IPSEN
  Company Number: None

PATIENT
  Age: 55 Year
  Sex: Male
  Weight: 53 kg

DRUGS (2)
  1. IRINOTECAN HYDROCHLORIDE [Suspect]
     Active Substance: IRINOTECAN HYDROCHLORIDE
     Indication: Pancreatic carcinoma
     Dosage: 86 MG, QD
     Route: 042
     Dates: start: 20240612, end: 20240612
  2. SINTILIMAB [Concomitant]
     Active Substance: SINTILIMAB
     Indication: Pancreatic carcinoma
     Dosage: 200 MG, D1, EVERY 3 WEEKS
     Route: 042
     Dates: start: 20240613, end: 20240613

REACTIONS (1)
  - Myelosuppression [Recovering/Resolving]

NARRATIVE: CASE EVENT DATE: 20240620
